FAERS Safety Report 21387911 (Version 1)
Quarter: 2022Q3

REPORT INFORMATION
  Report Type: Report from Study
  Country: US (occurrence: US)
  Receive Date: 20220928
  Receipt Date: 20220928
  Transmission Date: 20221027
  Serious: Yes (Other)
  Sender: FDA-Public Use
  Company Number: US-ABBVIE-4132345

PATIENT
  Sex: Female

DRUGS (4)
  1. HUMIRA [Suspect]
     Active Substance: ADALIMUMAB
     Indication: Psoriatic arthropathy
     Route: 058
  2. Pfizer/BioNTech [Concomitant]
     Indication: Product used for unknown indication
     Dosage: DOSE1
     Route: 030
     Dates: start: 20210602, end: 20210602
  3. Pfizer/BioNTech [Concomitant]
     Indication: Product used for unknown indication
     Route: 030
     Dates: start: 20211120, end: 20211120
  4. Pfizer/BioNTech [Concomitant]
     Indication: Product used for unknown indication
     Dosage: DOSE2
     Route: 030
     Dates: start: 20210707, end: 20210707

REACTIONS (2)
  - Back pain [Not Recovered/Not Resolved]
  - Sciatica [Unknown]

NARRATIVE: CASE EVENT DATE: 20220101
